FAERS Safety Report 7255082-9 (Version None)
Quarter: 2011Q1

REPORT INFORMATION
  Report Type: 
  Country: None (occurrence: None)
  Receive Date: 20110129
  Receipt Date: 20100308
  Transmission Date: 20110831
  Serious: No
  Sender: FDA-Public Use
  Company Number: US-ABBOTT-10P-163-0630646-00

PATIENT
  Sex: Female
  Weight: 86.26 kg

DRUGS (3)
  1. OXYBUTYNIN [Concomitant]
     Indication: POLLAKIURIA
     Route: 048
  2. LISINOPRIL [Concomitant]
     Indication: HYPERTENSION
     Route: 048
  3. HUMIRA [Suspect]
     Indication: PSORIASIS
     Route: 058
     Dates: start: 20100101

REACTIONS (3)
  - SINUS CONGESTION [None]
  - HYPERHIDROSIS [None]
  - NASAL DRYNESS [None]
